FAERS Safety Report 13662740 (Version 5)
Quarter: 2018Q2

REPORT INFORMATION
  Report Type: Report from Study
  Country: None (occurrence: US)
  Receive Date: 20170618
  Receipt Date: 20180530
  Transmission Date: 20180711
  Serious: Yes (Hospitalization, Other)
  Sender: FDA-Public Use
  Company Number: US-ABBVIE-17K-163-1942534-00

PATIENT
  Sex: Female

DRUGS (3)
  1. METOPROLOL. [Concomitant]
     Active Substance: METOPROLOL
     Indication: HYPERTENSION
  2. HUMIRA [Suspect]
     Active Substance: ADALIMUMAB
     Indication: RHEUMATOID ARTHRITIS
     Route: 058
     Dates: start: 2007, end: 201406
  3. HUMIRA [Suspect]
     Active Substance: ADALIMUMAB
     Route: 058

REACTIONS (10)
  - Muscle strain [Unknown]
  - Rheumatoid arthritis [Unknown]
  - Sensitivity to weather change [Unknown]
  - Hyperkeratosis [Unknown]
  - Rotator cuff syndrome [Unknown]
  - Pain in extremity [Unknown]
  - Mobility decreased [Unknown]
  - Device loosening [Recovered/Resolved]
  - Femur fracture [Recovered/Resolved]
  - Joint instability [Not Recovered/Not Resolved]

NARRATIVE: CASE EVENT DATE: 2010
